FAERS Safety Report 8593928-2 (Version None)
Quarter: 2012Q3

REPORT INFORMATION
  Report Type: 
  Country: None (occurrence: None)
  Receive Date: 20120803
  Receipt Date: 20120803
  Transmission Date: 20120928
  Serious: Yes (Other)
  Sender: FDA-Public Use
  Company Number: None

PATIENT
  Sex: Male

DRUGS (1)
  1. SUTENT [Suspect]
     Dosage: 50MG 1 CAPSULE QD ORAL
     Route: 048
     Dates: start: 20120426, end: 20120731

REACTIONS (6)
  - OROPHARYNGEAL PAIN [None]
  - GLOSSODYNIA [None]
  - CONTUSION [None]
  - EPISTAXIS [None]
  - OEDEMA PERIPHERAL [None]
  - ERYTHEMA [None]
